FAERS Safety Report 6886135-2 (Version None)
Quarter: 2010Q3

REPORT INFORMATION
  Report Type: 
  Country: None (occurrence: None)
  Receive Date: 20100729
  Receipt Date: 20080220
  Transmission Date: 20110219
  Serious: No
  Sender: FDA-Public Use
  Company Number: US-PFIZER INC-2008015886

PATIENT
  Sex: Female
  Weight: 63.6 kg

DRUGS (4)
  1. CELEBREX [Suspect]
     Indication: ARTHRITIS
     Dates: start: 20040101
  2. CELEBREX [Suspect]
     Indication: SPINAL OSTEOARTHRITIS
  3. LISINOPRIL [Concomitant]
  4. DRUG, UNSPECIFIED [Concomitant]

REACTIONS (4)
  - ABDOMINAL DISCOMFORT [None]
  - BODY HEIGHT DECREASED [None]
  - DYSPEPSIA [None]
  - PRURITUS [None]
